FAERS Safety Report 9138232 (Version 4)
Quarter: 2013Q3

REPORT INFORMATION
  Report Type: Spontaneous
  Country: JP (occurrence: JP)
  Receive Date: 20130305
  Receipt Date: 20130930
  Transmission Date: 20140515
  Serious: Yes (Life-Threatening, Hospitalization, Other)
  Sender: FDA-Public Use
  Company Number: JP-009507513-1210JPN001348

PATIENT
  Age: 65 Year
  Sex: Male
  Weight: 85 kg

DRUGS (6)
  1. BRIDION [Suspect]
     Indication: NEUROMUSCULAR BLOCKADE REVERSAL
     Dosage: 100 MG, QD
     Route: 042
     Dates: start: 20120416, end: 20120416
  2. PROPOFOL [Concomitant]
     Indication: INDUCTION OF ANAESTHESIA
     Dosage: DAILY DOSAGE UNKNOWN
     Dates: start: 20120416, end: 20120416
  3. ESLAX [Concomitant]
     Indication: NEUROMUSCULAR BLOCKING THERAPY
     Dosage: 50 MG, QD
     Route: 042
     Dates: start: 20120416, end: 20120416
  4. SEVOFLURANE [Concomitant]
     Indication: MAINTENANCE OF ANAESTHESIA
     Dosage: DAILY DOSAGE UNKNOWN
     Route: 055
     Dates: start: 20120416, end: 20120416
  5. FENTANYL CITRATE [Concomitant]
     Indication: MAINTENANCE OF ANAESTHESIA
     Dosage: DAILY DOSAGE UNKNOWN
     Dates: start: 20120416, end: 20120416
  6. REMIFENTANIL HYDROCHLORIDE [Concomitant]
     Indication: MAINTENANCE OF ANAESTHESIA
     Dosage: DAILY DOSAGE UNKNOWN
     Route: 042
     Dates: start: 20120416, end: 20120416

REACTIONS (4)
  - Hypotension [Recovered/Resolved]
  - Airway peak pressure increased [Recovered/Resolved]
  - Anaphylactic shock [Recovered/Resolved]
  - Rash [Recovered/Resolved]
